FAERS Safety Report 7897581-2 (Version None)
Quarter: 2011Q4

REPORT INFORMATION
  Report Type: 
  Country: None (occurrence: None)
  Receive Date: 20111107
  Receipt Date: 20111102
  Transmission Date: 20120403
  Serious: Yes (Life-Threatening)
  Sender: FDA-Public Use
  Company Number: JP-PFIZER INC-2011267703

PATIENT
  Age: 66 Year
  Sex: Male

DRUGS (2)
  1. SPIRONOLACTONE [Suspect]
     Indication: DIURETIC THERAPY
  2. DOPAMINE [Concomitant]
     Indication: BRADYCARDIA

REACTIONS (2)
  - HYPONATRAEMIA [None]
  - CARDIAC ARREST [None]
